FAERS Safety Report 7073572-9 (Version None)
Quarter: 2010Q4

REPORT INFORMATION
  Report Type: 
  Country: None (occurrence: None)
  Receive Date: 20101029
  Receipt Date: 20100712
  Transmission Date: 20110411
  Serious: No
  Sender: FDA-Public Use
  Company Number: A0869721A

PATIENT
  Sex: Male

DRUGS (1)
  1. ADVAIR DISKUS 100/50 [Suspect]
     Dates: start: 20100101

REACTIONS (1)
  - UPPER RESPIRATORY TRACT INFECTION [None]
